FAERS Safety Report 7531452-6 (Version None)
Quarter: 2011Q2

REPORT INFORMATION
  Report Type: 
  Country: None (occurrence: None)
  Receive Date: 20110608
  Receipt Date: 20110601
  Transmission Date: 20111010
  Serious: Yes (Death, Hospitalization)
  Sender: FDA-Public Use
  Company Number: BR-BRISTOL-MYERS SQUIBB COMPANY-15760416

PATIENT
  Age: 65 Year
  Sex: Male

DRUGS (1)
  1. BARACLUDE [Suspect]
     Indication: HEPATIC CIRRHOSIS
     Dosage: STUDY DRUG UNTIL 23AUG10,AFTER THAT DATE,STARTED RECEIVING MARKETED BARACLUDE
     Route: 048

REACTIONS (5)
  - HEPATIC ENCEPHALOPATHY [None]
  - RENAL FAILURE [None]
  - HEPATIC NEOPLASM MALIGNANT [None]
  - PERITONITIS BACTERIAL [None]
  - GASTROINTESTINAL HAEMORRHAGE [None]
